FAERS Safety Report 8873751 (Version 1)
Quarter: 2012Q4

REPORT INFORMATION
  Report Type: 
  Country: US (occurrence: US)
  Receive Date: 20121030
  Receipt Date: 20121030
  Transmission Date: 20130627
  Serious: Yes (Death, Hospitalization)
  Sender: FDA-Public Use
  Company Number: US-ALEXION PHARMACEUTICALS INC.-A201201971

PATIENT
  Age: 72 Year
  Sex: Male

DRUGS (5)
  1. SOLIRIS 300MG [Suspect]
     Indication: PAROXYSMAL NOCTURNAL HAEMOGLOBINURIA
     Dosage: 600 mg, UNK
     Route: 042
     Dates: start: 20120618, end: 20120625
  2. NEUPOGEN [Concomitant]
     Indication: PANCYTOPENIA
     Dosage: 600 ?g, qd
     Route: 058
  3. LEXAPRO [Concomitant]
     Dosage: 10 mg, qd
     Route: 048
  4. COMPAZINE [Concomitant]
     Indication: NAUSEA
     Dosage: 10 mg, prn
     Route: 048
  5. SYNTHROID [Concomitant]
     Dosage: UNK

REACTIONS (2)
  - Pneumonia [Fatal]
  - Platelet count decreased [Unknown]
